FAERS Safety Report 10957492 (Version 4)
Quarter: 2016Q2

REPORT INFORMATION
  Report Type: Report from Study
  Country: JP (occurrence: JP)
  Receive Date: 20150326
  Receipt Date: 20160412
  Transmission Date: 20160815
  Serious: Yes (Other)
  Sender: FDA-Public Use
  Company Number: JP-JNJFOC-20150318566

PATIENT
  Age: 63 Year
  Sex: Female
  Weight: 67 kg

DRUGS (19)
  1. USTEKINUMAB [Suspect]
     Active Substance: USTEKINUMAB
     Indication: PSORIASIS
     Route: 058
     Dates: start: 20121127, end: 20141216
  2. RULID [Concomitant]
     Active Substance: ROXITHROMYCIN
     Indication: PSORIASIS
     Route: 048
     Dates: start: 20130402, end: 20130415
  3. ANTEBATE [Concomitant]
     Active Substance: BETAMETHASONE DIPROPIONATE
     Indication: PSORIASIS
     Route: 061
     Dates: start: 20130402, end: 20130805
  4. PROTOPIC [Concomitant]
     Active Substance: TACROLIMUS
     Indication: PSORIASIS
     Route: 061
     Dates: end: 20130805
  5. TALION [Concomitant]
     Active Substance: BEPOTASTINE
     Indication: PSORIASIS
     Route: 048
     Dates: start: 20121016
  6. SATOSALBE [Concomitant]
     Active Substance: ZINC OXIDE
     Indication: PSORIASIS
     Route: 061
     Dates: start: 20130806
  7. USTEKINUMAB [Suspect]
     Active Substance: USTEKINUMAB
     Indication: PSORIASIS
     Route: 058
     Dates: start: 20121030, end: 20121030
  8. USTEKINUMAB [Suspect]
     Active Substance: USTEKINUMAB
     Indication: PSORIASIS
     Route: 058
     Dates: start: 20151208, end: 20151208
  9. NEO-MEDROL [Concomitant]
     Active Substance: METHYLPREDNISOLONE\NEOMYCIN SULFATE
     Indication: PSORIASIS
     Route: 061
     Dates: start: 20131029
  10. OXAROL [Concomitant]
     Active Substance: MAXACALCITOL
     Indication: PSORIASIS
     Route: 065
     Dates: start: 20130219
  11. CINAL [Concomitant]
     Active Substance: ASCORBIC ACID\CALCIUM PANTOTHENATE
     Indication: PIGMENTATION DISORDER
     Route: 048
     Dates: start: 20121030
  12. FUROZIN [Concomitant]
     Active Substance: CARPRONIUM CHLORIDE
     Route: 061
     Dates: start: 20121030
  13. LOCHOL [Concomitant]
     Active Substance: FLUVASTATIN SODIUM
     Indication: HYPERLIPIDAEMIA
     Route: 048
     Dates: start: 20140121
  14. CINAL [Concomitant]
     Active Substance: ASCORBIC ACID\CALCIUM PANTOTHENATE
     Indication: PSORIASIS
     Route: 048
     Dates: start: 20121030
  15. RINDERON VG [Concomitant]
     Active Substance: BETAMETHASONE VALERATE\GENTAMICIN SULFATE
     Indication: PSORIASIS
     Route: 061
     Dates: start: 20130402, end: 20130415
  16. USTEKINUMAB [Suspect]
     Active Substance: USTEKINUMAB
     Indication: PSORIASIS
     Route: 058
     Dates: start: 20150331
  17. TOPSYM [Concomitant]
     Indication: PSORIASIS
     Route: 061
     Dates: start: 20121030, end: 20130805
  18. ANTEBATE [Concomitant]
     Active Substance: BETAMETHASONE DIPROPIONATE
     Indication: PSORIASIS
     Route: 061
  19. NERISONA [Concomitant]
     Active Substance: DIFLUCORTOLONE VALERATE
     Indication: PSORIASIS
     Route: 061

REACTIONS (4)
  - Enterocolitis [Recovered/Resolved]
  - Nasopharyngitis [Recovered/Resolved]
  - Pneumonia [Recovered/Resolved]
  - Upper respiratory tract inflammation [Recovered/Resolved]

NARRATIVE: CASE EVENT DATE: 201502
